FAERS Safety Report 18050262 (Version 1)
Quarter: 2020Q3

REPORT INFORMATION
  Report Type: Report from Study
  Country: US (occurrence: US)
  Receive Date: 20200721
  Receipt Date: 20200721
  Transmission Date: 20201103
  Serious: Yes (Death)
  Sender: FDA-Public Use
  Company Number: US-TAKEDA-2020TUS012204

PATIENT
  Sex: Male

DRUGS (1)
  1. IXAZOMIB [Suspect]
     Active Substance: IXAZOMIB
     Indication: MONOCLONAL GAMMOPATHY
     Dosage: 4 MILLIGRAM
     Route: 048
     Dates: start: 20200228

REACTIONS (2)
  - Death [Fatal]
  - Off label use [Unknown]
